FAERS Safety Report 22655764 (Version 1)
Quarter: 2023Q2

REPORT INFORMATION
  Report Type: Report from Study
  Country: US (occurrence: US)
  Receive Date: 20230629
  Receipt Date: 20230629
  Transmission Date: 20230722
  Serious: Yes (Other)
  Sender: FDA-Public Use
  Company Number: US-002147023-NVSC2023US147863

PATIENT
  Sex: Male
  Weight: 79.365 kg

DRUGS (2)
  1. METHOTREXATE [Suspect]
     Active Substance: METHOTREXATE
     Indication: Psoriasis
     Dosage: UNK
     Route: 065
  2. FLUOCINONIDE [Suspect]
     Active Substance: FLUOCINONIDE
     Indication: Psoriasis
     Dosage: UNK
     Route: 065

REACTIONS (8)
  - Polyarthritis [Unknown]
  - Arthralgia [Unknown]
  - Joint stiffness [Unknown]
  - Nail psoriasis [Unknown]
  - Psoriasis [Unknown]
  - Rash [Unknown]
  - Skin plaque [Unknown]
  - Drug ineffective [Unknown]
